FAERS Safety Report 13461558 (Version 1)
Quarter: 2017Q2

REPORT INFORMATION
  Report Type: Spontaneous
  Country: US (occurrence: US)
  Receive Date: 20170420
  Receipt Date: 20170420
  Transmission Date: 20170830
  Serious: Yes (Other)
  Sender: FDA-Public Use
  Company Number: US-JNJFOC-20170333527

PATIENT
  Age: 46 Year
  Sex: Male

DRUGS (6)
  1. FENTANYL. [Suspect]
     Active Substance: FENTANYL
     Indication: DELIRIUM
     Route: 065
  2. LORAZEPAM. [Suspect]
     Active Substance: LORAZEPAM
     Indication: DELIRIUM
     Route: 065
  3. DEXMEDETOMIDINE. [Suspect]
     Active Substance: DEXMEDETOMIDINE
     Indication: DELIRIUM
     Route: 065
  4. HALOPERIDOL. [Suspect]
     Active Substance: HALOPERIDOL
     Indication: DELIRIUM
     Route: 065
  5. PROPOFOL. [Suspect]
     Active Substance: PROPOFOL
     Indication: DELIRIUM
     Route: 065
  6. CLONIDINE. [Suspect]
     Active Substance: CLONIDINE
     Indication: DELIRIUM
     Route: 065

REACTIONS (3)
  - Electrocardiogram QT prolonged [Unknown]
  - Off label use [Unknown]
  - Drug ineffective for unapproved indication [Unknown]
